FAERS Safety Report 25691444 (Version 1)
Quarter: 2025Q3

REPORT INFORMATION
  Report Type: Spontaneous
  Country: JP (occurrence: JP)
  Receive Date: 20250818
  Receipt Date: 20250818
  Transmission Date: 20251021
  Serious: Yes (Other)
  Sender: PFIZER
  Company Number: JP-PFIZER INC-202500164062

PATIENT

DRUGS (1)
  1. BOSULIF [Suspect]
     Active Substance: BOSUTINIB MONOHYDRATE
     Route: 048

REACTIONS (3)
  - Intentional dose omission [Unknown]
  - Malignant neoplasm progression [Unknown]
  - Respiratory disorder [Unknown]
